FAERS Safety Report 21924072 (Version 2)
Quarter: 2023Q4

REPORT INFORMATION
  Report Type: Spontaneous
  Country: US (occurrence: US)
  Receive Date: 20230130
  Receipt Date: 20231128
  Transmission Date: 20240110
  Serious: Yes (Other)
  Sender: FDA-Public Use
  Company Number: US-UCBSA-2022010308

PATIENT
  Age: 54 Year
  Sex: Male

DRUGS (6)
  1. LEVETIRACETAM [Suspect]
     Active Substance: LEVETIRACETAM
     Indication: Focal dyscognitive seizures
     Dosage: 1500 MILLIGRAM
     Route: 042
  2. LEVETIRACETAM [Suspect]
     Active Substance: LEVETIRACETAM
     Indication: Generalised tonic-clonic seizure
     Dosage: 1000 MILLIGRAM, 2X/DAY (BID)
     Route: 042
  3. LEVETIRACETAM [Suspect]
     Active Substance: LEVETIRACETAM
     Indication: Off label use
     Dosage: 1500 MILLIGRAM, 2X/DAY (BID)
     Route: 042
  4. PHENYTOIN [Suspect]
     Active Substance: PHENYTOIN
     Indication: Focal dyscognitive seizures
     Dosage: LOADED WITH 1000 MILLIGRAM
  5. PHENYTOIN [Suspect]
     Active Substance: PHENYTOIN
     Dosage: 100 MG EVERY 8 HOURS FOR MAINTENANCE
  6. FLUCONAZOLE [Concomitant]
     Active Substance: FLUCONAZOLE
     Indication: Coccidioidomycosis
     Dosage: 600 MILLIGRAM

REACTIONS (3)
  - Seizure [Recovering/Resolving]
  - Drug ineffective [Unknown]
  - Off label use [Unknown]
